FAERS Safety Report 8891324 (Version 1)
Quarter: 2012Q4

REPORT INFORMATION
  Report Type: Spontaneous
  Country: US (occurrence: None)
  Receive Date: 20121105
  Receipt Date: 20121105
  Transmission Date: 20130627
  Serious: Yes (Other)
  Sender: FDA-Public Use
  Company Number: None

PATIENT
  Age: 79 Year
  Sex: Female
  Weight: 54.43 kg

DRUGS (2)
  1. BOTOX COSMETIC [Suspect]
     Indication: SKIN COSMETIC PROCEDURE
     Dosage: 0.22 4 injection
     Dates: start: 20120521
  2. BOTOX COSMETIC [Suspect]
     Indication: SKIN COSMETIC PROCEDURE
     Dates: start: 20120620

REACTIONS (13)
  - Nausea [None]
  - Headache [None]
  - Abdominal distension [None]
  - Thirst [None]
  - Chest pain [None]
  - Eye pain [None]
  - Blood pressure increased [None]
  - Decreased appetite [None]
  - Weight decreased [None]
  - Dizziness [None]
  - Cough [None]
  - Abdominal wall disorder [None]
  - Hypertonic bladder [None]
